FAERS Safety Report 23723809 (Version 1)
Quarter: 2024Q2

REPORT INFORMATION
  Report Type: Spontaneous
  Country: US (occurrence: None)
  Receive Date: 20240409
  Receipt Date: 20240409
  Transmission Date: 20240716
  Serious: No
  Sender: FDA-Public Use
  Company Number: None

PATIENT
  Age: 29 Year
  Sex: Male
  Weight: 117 kg

DRUGS (1)
  1. TIRZEPATIDE [Suspect]
     Active Substance: TIRZEPATIDE
     Indication: Weight decreased
     Dates: start: 20240325, end: 20240328

REACTIONS (5)
  - Malaise [None]
  - Vomiting [None]
  - Diarrhoea [None]
  - Blood glucose decreased [None]
  - Product substitution issue [None]
